FAERS Safety Report 6114285-7 (Version None)
Quarter: 2009Q1

REPORT INFORMATION
  Report Type: 
  Country: None (occurrence: None)
  Receive Date: 20090312
  Receipt Date: 20081103
  Transmission Date: 20090719
  Serious: No
  Sender: FDA-Public Use
  Company Number: US-ABBOTT-08P-163-0485276-00

PATIENT
  Sex: Male
  Weight: 93.07 kg

DRUGS (3)
  1. DEPAKOTE [Suspect]
     Indication: DEPRESSION
     Dosage: 500MG BID
     Route: 048
     Dates: start: 20080420, end: 20080510
  2. DEPAKOTE [Suspect]
     Indication: BIPOLAR DISORDER
  3. DEPAKOTE [Suspect]
     Indication: MANIA

REACTIONS (2)
  - ABNORMAL BEHAVIOUR [None]
  - DEPRESSION [None]
